FAERS Safety Report 6006509-1 (Version None)
Quarter: 2008Q4

REPORT INFORMATION
  Report Type: 
  Country: None (occurrence: None)
  Receive Date: 20081217
  Receipt Date: 20081210
  Transmission Date: 20090506
  Serious: Yes (Hospitalization)
  Sender: FDA-Public Use
  Company Number: US-AMGEN-QUU318827

PATIENT
  Sex: Male
  Weight: 84.4 kg

DRUGS (6)
  1. NEUPOGEN [Suspect]
     Indication: CHEMOTHERAPY
     Route: 065
  2. NEULASTA [Suspect]
     Indication: CHEMOTHERAPY
     Route: 065
     Dates: start: 20080801
  3. ADRIAMYCIN PFS [Concomitant]
     Dates: start: 20080727
  4. BLEOMYCIN SULFATE [Concomitant]
     Dates: start: 20080727
  5. VINBLASTINE SULFATE [Concomitant]
     Dates: start: 20080727
  6. DACARBAZINE [Concomitant]
     Dates: start: 20080727

REACTIONS (2)
  - PYREXIA [None]
  - WHITE BLOOD CELL COUNT DECREASED [None]
